FAERS Safety Report 16727304 (Version 1)
Quarter: 2019Q3

REPORT INFORMATION
  Report Type: Spontaneous
  Country: US (occurrence: US)
  Receive Date: 20190822
  Receipt Date: 20190822
  Transmission Date: 20191005
  Serious: Yes (Other)
  Sender: FDA-Public Use
  Company Number: US-SA-2019SA232178

PATIENT
  Age: 51 Year
  Sex: Male

DRUGS (2)
  1. ADMELOG [Suspect]
     Active Substance: INSULIN LISPRO
     Indication: TYPE 1 DIABETES MELLITUS
     Dosage: 10 U, TID
     Route: 065
  2. ADMELOG [Suspect]
     Active Substance: INSULIN LISPRO
     Dosage: WEEKENDS HE USUALLY TAKES MORE ADMELOG, ABOUT 20 UNITS
     Route: 065

REACTIONS (3)
  - Device operational issue [Unknown]
  - Extra dose administered [Unknown]
  - Diabetes mellitus inadequate control [Unknown]
